FAERS Safety Report 21453203 (Version 11)
Quarter: 2024Q2

REPORT INFORMATION
  Report Type: Report from Study
  Country: US (occurrence: US)
  Receive Date: 20221013
  Receipt Date: 20240621
  Transmission Date: 20240716
  Serious: Yes (Other)
  Sender: FDA-Public Use
  Company Number: US-BRISTOL-MYERS SQUIBB COMPANY-2022-119562

PATIENT
  Age: 69 Year
  Sex: Female
  Weight: 56.7 kg

DRUGS (8)
  1. SPRYCEL [Suspect]
     Active Substance: DASATINIB
     Indication: Chronic myeloid leukaemia
     Route: 048
     Dates: start: 20220120
  2. SPRYCEL [Suspect]
     Active Substance: DASATINIB
     Route: 048
     Dates: start: 202210
  3. SPRYCEL [Suspect]
     Active Substance: DASATINIB
     Route: 048
  4. SPRYCEL [Suspect]
     Active Substance: DASATINIB
     Dosage: DAILY
     Route: 048
     Dates: start: 20220119
  5. SPRYCEL [Suspect]
     Active Substance: DASATINIB
     Dosage: DAILY
     Route: 048
  6. SPRYCEL [Suspect]
     Active Substance: DASATINIB
     Dosage: DAILY
     Route: 048
  7. SPRYCEL [Suspect]
     Active Substance: DASATINIB
     Dosage: DAILY
     Route: 048
  8. SPRYCEL [Suspect]
     Active Substance: DASATINIB
     Route: 048
     Dates: start: 20230207

REACTIONS (20)
  - Pulmonary oedema [Unknown]
  - Neuropathy peripheral [Not Recovered/Not Resolved]
  - Deafness [Unknown]
  - Ear disorder [Unknown]
  - Pleural effusion [Unknown]
  - Weight increased [Unknown]
  - Anxiety [Unknown]
  - Insomnia [Unknown]
  - Depression [Unknown]
  - Muscle spasms [Unknown]
  - Urinary tract infection [Unknown]
  - Diarrhoea [Unknown]
  - Rash [Unknown]
  - Abdominal distension [Unknown]
  - Alopecia [Unknown]
  - Vision blurred [Unknown]
  - Fear of disease [Unknown]
  - Nausea [Unknown]
  - Nerve injury [Unknown]
  - Generalised oedema [Unknown]
